FAERS Safety Report 6353232-X (Version None)
Quarter: 2009Q3

REPORT INFORMATION
  Report Type: 
  Country: None (occurrence: None)
  Receive Date: 20090912
  Receipt Date: 20090622
  Transmission Date: 20100115
  Serious: No
  Sender: FDA-Public Use
  Company Number: US-ABBOTT-08P-163-0457876-00

PATIENT
  Sex: Female
  Weight: 72.186 kg

DRUGS (4)
  1. HUMIRA [Suspect]
     Indication: RHEUMATOID ARTHRITIS
     Dosage: 40 MG QOW PEN
     Route: 058
     Dates: start: 20080301
  2. HUMIRA [Suspect]
     Dosage: 40MG QOW SYRINGES
     Route: 058
     Dates: start: 20060301, end: 20080301
  3. METHOTREXATE [Concomitant]
     Indication: RHEUMATOID ARTHRITIS
     Dosage: 8-2.5 MG TABLETS WEEKLY
     Route: 048
     Dates: start: 20060101
  4. HYDROXYCHLOROQUINE [Concomitant]
     Indication: RHEUMATOID ARTHRITIS
     Route: 048
     Dates: start: 20080401

REACTIONS (1)
  - INCORRECT DOSE ADMINISTERED [None]
